FAERS Safety Report 10374836 (Version 1)
Quarter: 2014Q3

REPORT INFORMATION
  Report Type: Spontaneous
  Country: US (occurrence: None)
  Receive Date: 20140808
  Receipt Date: 20140808
  Transmission Date: 20150326
  Serious: Yes (Life-Threatening, Hospitalization)
  Sender: FDA-Public Use
  Company Number: None

PATIENT
  Age: 19 Year
  Sex: Female
  Weight: 66 kg

DRUGS (32)
  1. PREDNISONE. [Concomitant]
     Active Substance: PREDNISONE
  2. MYCOPHENOLATE(CELLCEPT) [Concomitant]
  3. ATENOLOL(TENORMIN) [Concomitant]
  4. CALCITRIOL. [Concomitant]
     Active Substance: CALCITRIOL
  5. AMLODIPINE(NORVASC) [Concomitant]
  6. PREDNISONE. [Concomitant]
     Active Substance: PREDNISONE
  7. ISONIAZIDE [Concomitant]
     Active Substance: ISONIAZID
  8. MYCOPHENOLATE [Concomitant]
     Active Substance: MYCOPHENOLIC ACID
  9. PYRIDOXINE [Concomitant]
     Active Substance: PYRIDOXINE
  10. AMLODIPINE [Concomitant]
     Active Substance: AMLODIPINE BESYLATE
  11. ISONIAZID(NYDRAZID) [Concomitant]
  12. CALCITRIOL(ROCALTROL) [Concomitant]
  13. HYDROXYCHLOROQUINE [Concomitant]
     Active Substance: HYDROXYCHLOROQUINE
  14. SEVELAMER [Concomitant]
     Active Substance: SEVELAMER
  15. FOLIC ACID(FLOVITE) [Concomitant]
  16. BENZOCAINE. [Suspect]
     Active Substance: BENZOCAINE
     Indication: TOOTHACHE
     Dosage: 1 APPLICATION ONLY ?STRENGTH 20%, 9.35 GRAM TUBE
  17. CALCITRIOL. [Concomitant]
     Active Substance: CALCITRIOL
  18. ATENOLOL. [Concomitant]
     Active Substance: ATENOLOL
  19. HYDROXYCHLORQUINE(PLAQUENIL) [Concomitant]
  20. PREDNISONE(DELTASONE) [Concomitant]
  21. OMEPRAZOLE. [Concomitant]
     Active Substance: OMEPRAZOLE
  22. BUPROPRION [Concomitant]
     Active Substance: BUPROPION
  23. FOLIC ACID. [Concomitant]
     Active Substance: FOLIC ACID
  24. SEVELAMER [Concomitant]
     Active Substance: SEVELAMER
  25. FERROUS GLUCONATE [Concomitant]
     Active Substance: FERROUS GLUCONATE
  26. FOLIC ACID. [Concomitant]
     Active Substance: FOLIC ACID
  27. BENZOCAINE. [Suspect]
     Active Substance: BENZOCAINE
     Indication: GINGIVAL PAIN
     Dosage: 1 APPLICATION ONLY ?STRENGTH 20%, 9.35 GRAM TUBE
  28. FERROUS GLUCONATE [Concomitant]
     Active Substance: FERROUS GLUCONATE
  29. OMEPRAZOLE. [Concomitant]
     Active Substance: OMEPRAZOLE
  30. BUPROPRION [Concomitant]
     Active Substance: BUPROPION
  31. FERROUS GLUCONATE(FERGON) [Concomitant]
  32. PYRIDOXINE(B-6) [Concomitant]

REACTIONS (5)
  - Syncope [None]
  - Methaemoglobinaemia [None]
  - Depressed level of consciousness [None]
  - Dyspnoea [None]
  - Cyanosis [None]

NARRATIVE: CASE EVENT DATE: 20140804
